FAERS Safety Report 8211349-9 (Version None)
Quarter: 2012Q1

REPORT INFORMATION
  Report Type: 
  Country: None (occurrence: None)
  Receive Date: 20120315
  Receipt Date: 20120315
  Transmission Date: 20120608
  Serious: Yes (Death, Life-Threatening, Hospitalization)
  Sender: FDA-Public Use
  Company Number: None

PATIENT
  Age: 80 Year
  Sex: Female
  Weight: 87.6 kg

DRUGS (16)
  1. POTASSIUM CHLORIDE [Concomitant]
     Route: 048
  2. APAP 650MG/20ML [Concomitant]
     Route: 048
  3. COLCHICINE [Concomitant]
     Route: 048
  4. NYSTATIN 100,000 UN/G [Concomitant]
     Route: 061
  5. FUROSEMIDE [Concomitant]
     Route: 048
  6. SPIRONOLACTONE AND HYDROCHLOROTHIAZIDE [Concomitant]
     Route: 048
  7. CELECOXIB [Concomitant]
     Route: 048
  8. CITALOPRAM HYDROBROMIDE [Concomitant]
     Route: 048
  9. HYDROCODONE BITARTRATE + ACETAMINOPHEN [Concomitant]
     Route: 048
  10. M.V.I. [Concomitant]
     Route: 048
  11. INDOMETHACIN [Concomitant]
     Route: 048
  12. ASPIRIN [Concomitant]
     Route: 048
  13. METOPROLOL SUCCINATE [Concomitant]
     Route: 048
  14. PRADAXA [Suspect]
  15. ZOLPIDEM [Concomitant]
     Route: 048
  16. OMEPRAZOLE [Concomitant]
     Route: 048

REACTIONS (6)
  - ASTHENIA [None]
  - QUALITY OF LIFE DECREASED [None]
  - SKIN NECROSIS [None]
  - COMPARTMENT SYNDROME [None]
  - EMBOLISM ARTERIAL [None]
  - PAIN IN EXTREMITY [None]
